FAERS Safety Report 5399679-X (Version None)
Quarter: 2007Q3

REPORT INFORMATION
  Report Type: 
  Country: None (occurrence: None)
  Receive Date: 20070727
  Receipt Date: 20070717
  Transmission Date: 20080115
  Serious: Yes (Hospitalization)
  Sender: FDA-Public Use
  Company Number: DE-PFIZER INC-2007059024

PATIENT
  Sex: Female

DRUGS (4)
  1. ACCUPRO [Suspect]
     Indication: HYPERTENSION
     Dosage: DAILY DOSE:10MG-FREQ:DAILY
     Route: 048
     Dates: start: 20070315, end: 20070601
  2. SELECTOL [Concomitant]
     Route: 048
  3. NORVASC [Concomitant]
     Route: 048
  4. KARVEA [Concomitant]

REACTIONS (3)
  - ABDOMINAL PAIN [None]
  - DECREASED APPETITE [None]
  - WEIGHT DECREASED [None]
